FAERS Safety Report 5165073-X (Version None)
Quarter: 2006Q4

REPORT INFORMATION
  Report Type: 
  Country: None (occurrence: None)
  Receive Date: 20061124
  Receipt Date: 20061114
  Transmission Date: 20070319
  Serious: Yes (Hospitalization, Other)
  Sender: FDA-Public Use
  Company Number: 2006083446

PATIENT
  Age: 16 Year
  Sex: Female

DRUGS (5)
  1. GENOTROPIN [Suspect]
     Indication: PRADER-WILLI SYNDROME
     Dosage: SEE IMAGE, SUBCUTANEOUS
     Route: 058
     Dates: start: 20040514, end: 20050514
  2. GENOTROPIN [Suspect]
     Indication: PRADER-WILLI SYNDROME
     Dosage: SEE IMAGE, SUBCUTANEOUS
     Route: 058
     Dates: start: 19960603
  3. GENOTROPIN [Suspect]
     Indication: PRADER-WILLI SYNDROME
     Dosage: SEE IMAGE, SUBCUTANEOUS
     Route: 058
     Dates: start: 19991215
  4. GENOTROPIN [Suspect]
     Indication: PRADER-WILLI SYNDROME
     Dosage: SEE IMAGE, SUBCUTANEOUS
     Route: 058
     Dates: start: 20010221
  5. GENOTROPIN [Suspect]
     Indication: PRADER-WILLI SYNDROME
     Dosage: SEE IMAGE, SUBCUTANEOUS
     Route: 058
     Dates: start: 20030514

REACTIONS (2)
  - CARDIAC TAMPONADE [None]
  - SYSTEMIC LUPUS ERYTHEMATOSUS [None]
